FAERS Safety Report 14701199 (Version 9)
Quarter: 2020Q1

REPORT INFORMATION
  Report Type: Report from Study
  Country: JP (occurrence: JP)
  Receive Date: 20180330
  Receipt Date: 20200218
  Transmission Date: 20200409
  Serious: Yes (Hospitalization, Other)
  Sender: FDA-Public Use
  Company Number: JP-CELGENEUS-JPN-20180309753

PATIENT
  Age: 67 Year
  Sex: Male

DRUGS (28)
  1. LENADEX [Suspect]
     Active Substance: DEXAMETHASONE ACETATE
     Route: 048
     Dates: start: 20180131, end: 20180208
  2. BORTEZOMIB. [Suspect]
     Active Substance: BORTEZOMIB
     Dosage: UNKNOWN
     Route: 065
     Dates: start: 20180406, end: 20180603
  3. VANCOMYCIN [Concomitant]
     Active Substance: VANCOMYCIN
     Indication: ADVERSE EVENT
     Dosage: UNKNOWN
     Route: 041
  4. BAKTAR [Suspect]
     Active Substance: SULFAMETHOXAZOLE\TRIMETHOPRIM
     Indication: PROPHYLAXIS
     Dosage: UNKNOWN
     Route: 048
     Dates: start: 20170727, end: 20180807
  5. VICCLOX [Suspect]
     Active Substance: ACYCLOVIR SODIUM
     Indication: PROPHYLAXIS
     Dosage: UNKNOWN
     Route: 048
     Dates: start: 20170728
  6. BORTEZOMIB. [Suspect]
     Active Substance: BORTEZOMIB
     Indication: PLASMA CELL MYELOMA
     Dosage: UNKNOWN
     Route: 058
     Dates: start: 20170728, end: 20170807
  7. LEVOFLOXACIN. [Concomitant]
     Active Substance: LEVOFLOXACIN
     Indication: ADVERSE EVENT
     Dosage: UNKNOWN
     Route: 048
  8. CYCLOPHOSPHAMIDE. [Concomitant]
     Active Substance: CYCLOPHOSPHAMIDE
     Indication: PLASMA CELL MYELOMA
     Dosage: UNKNOWN
     Route: 065
     Dates: start: 20180604, end: 20180712
  9. FLUCONAZOLE. [Suspect]
     Active Substance: FLUCONAZOLE
     Indication: PROPHYLAXIS
     Dosage: UNKNOWN
     Route: 048
     Dates: start: 20170728
  10. REVLIMID [Suspect]
     Active Substance: LENALIDOMIDE
     Dosage: 10 MILLIGRAM
     Route: 048
     Dates: start: 20180208, end: 20180208
  11. LANSOPRAZOLE. [Concomitant]
     Active Substance: LANSOPRAZOLE
     Indication: PROPHYLAXIS
     Dosage: UNKNOWN
     Route: 048
  12. DAIPHEN [Concomitant]
     Active Substance: SULFAMETHOXAZOLE\TRIMETHOPRIM
     Indication: PROPHYLAXIS
     Dosage: UNKNOWN
     Route: 048
  13. CEFEPIME [Suspect]
     Active Substance: CEFEPIME HYDROCHLORIDE
     Indication: PYREXIA
     Dosage: UNKNOWN
     Route: 041
     Dates: start: 20170808, end: 20170811
  14. REVLIMID [Suspect]
     Active Substance: LENALIDOMIDE
     Indication: PLASMA CELL MYELOMA
     Dosage: 10 MILLIGRAM
     Route: 048
     Dates: start: 20170728, end: 20170810
  15. LENADEX [Suspect]
     Active Substance: DEXAMETHASONE ACETATE
     Route: 048
     Dates: start: 20180406, end: 20180603
  16. LENADEX [Suspect]
     Active Substance: DEXAMETHASONE ACETATE
     Route: 048
     Dates: start: 20180604, end: 20180712
  17. BENAMBAX [Concomitant]
     Active Substance: PENTAMIDINE
     Indication: PROPHYLAXIS
     Dosage: UNKNOWN
     Route: 055
  18. ONETRAM [Concomitant]
     Active Substance: TRAMADOL HYDROCHLORIDE
     Indication: PLASMA CELL MYELOMA
     Dosage: UNKNOWN
     Route: 048
  19. LIXIANA [Concomitant]
     Active Substance: EDOXABAN TOSYLATE
     Indication: PROPHYLAXIS
  20. LENADEX [Suspect]
     Active Substance: DEXAMETHASONE ACETATE
     Indication: PLASMA CELL MYELOMA
     Dosage: 40 MILLIGRAM
     Route: 048
     Dates: start: 20170728, end: 20170811
  21. CRESTOR [Concomitant]
     Active Substance: ROSUVASTATIN CALCIUM
     Indication: PRODUCT USED FOR UNKNOWN INDICATION
     Dosage: UNKNOWN
     Route: 048
  22. NORVASC [Concomitant]
     Active Substance: AMLODIPINE BESYLATE
     Indication: PRODUCT USED FOR UNKNOWN INDICATION
     Dosage: UNKNOWN
     Route: 048
  23. BAYASPIRIN [Concomitant]
     Active Substance: ASPIRIN
     Indication: PROPHYLAXIS
     Dosage: UNKNOWN
     Route: 048
  24. KENKETU GLOVENIN-I [Concomitant]
     Active Substance: HUMAN IMMUNOGLOBULIN G
     Indication: ADVERSE EVENT
     Dosage: UNKNOWN
     Route: 041
  25. REVLIMID [Suspect]
     Active Substance: LENALIDOMIDE
     Dosage: 15 MILLIGRAM
     Route: 048
     Dates: start: 20180131, end: 20180207
  26. ZOLEDRONIC ACID [Suspect]
     Active Substance: ZOLEDRONIC ACID
     Indication: PLASMA CELL MYELOMA
     Dosage: UNKNOWN
     Route: 041
  27. BORTEZOMIB. [Suspect]
     Active Substance: BORTEZOMIB
     Dosage: UNKNOWN
     Route: 065
     Dates: start: 20180604, end: 20180712
  28. LIXIANA [Concomitant]
     Active Substance: EDOXABAN TOSYLATE
     Indication: ADVERSE EVENT
     Dosage: UNKNOWN
     Route: 048
     Dates: start: 20180208

REACTIONS (11)
  - Platelet count decreased [Recovered/Resolved]
  - Deep vein thrombosis [Recovering/Resolving]
  - Plasma cell myeloma [Unknown]
  - Pyrexia [Recovered/Resolved]
  - Neutrophil count decreased [Recovered/Resolved]
  - Hypoalbuminaemia [Recovering/Resolving]
  - Cytomegalovirus enterocolitis [Recovered/Resolved]
  - Lymphocyte count decreased [Recovered/Resolved]
  - Rash [Recovered/Resolved]
  - Cytomegalovirus enteritis [Recovered/Resolved]
  - Pneumonia bacterial [Recovered/Resolved]

NARRATIVE: CASE EVENT DATE: 20170808
